FAERS Safety Report 19630556 (Version 3)
Quarter: 2021Q4

REPORT INFORMATION
  Report Type: Other
  Country: US (occurrence: US)
  Receive Date: 20210729
  Receipt Date: 20211006
  Transmission Date: 20220303
  Serious: Yes (Hospitalization)
  Sender: FDA-Public Use
  Company Number: US-ROCHE-2879757

PATIENT
  Age: 55 Year
  Sex: Female

DRUGS (1)
  1. OCRELIZUMAB [Suspect]
     Active Substance: OCRELIZUMAB
     Indication: Multiple sclerosis
     Dosage: DATE OF SECOND ADMINISTRATION: 29/SEP/2020
     Route: 042
     Dates: start: 20200903

REACTIONS (1)
  - Herpes virus infection [Recovered/Resolved with Sequelae]

NARRATIVE: CASE EVENT DATE: 20210414
